FAERS Safety Report 18826625 (Version 3)
Quarter: 2021Q1

REPORT INFORMATION
  Report Type: Spontaneous
  Country: US (occurrence: US)
  Receive Date: 20210202
  Receipt Date: 20210209
  Transmission Date: 20210419
  Serious: Yes (Death, Hospitalization)
  Sender: FDA-Public Use
  Company Number: US-PFIZER INC-2004090588

PATIENT
  Sex: Male

DRUGS (1)
  1. THROMBOSTAT [Suspect]
     Active Substance: THROMBIN
     Indication: HAEMOSTASIS
     Dosage: UNK

REACTIONS (12)
  - Coagulopathy [Fatal]
  - Haemothorax [Fatal]
  - Hypoxia [Fatal]
  - Prothrombin time prolonged [Fatal]
  - Activated partial thromboplastin time prolonged [Fatal]
  - Coagulation factor V level decreased [Fatal]
  - Ventricular arrhythmia [Fatal]
  - Epistaxis [Fatal]
  - Coagulation factor XI level decreased [Unknown]
  - Drug ineffective [Unknown]
  - Thrombin time prolonged [Fatal]
  - Thrombocytopenia [Fatal]
